FAERS Safety Report 20301523 (Version 2)
Quarter: 2022Q1

REPORT INFORMATION
  Report Type: Spontaneous
  Country: US (occurrence: US)
  Receive Date: 20220105
  Receipt Date: 20220111
  Transmission Date: 20220423
  Serious: Yes (Death, Other)
  Sender: FDA-Public Use
  Company Number: US-PFIZER INC-202101878886

PATIENT
  Age: 89 Year
  Sex: Male

DRUGS (1)
  1. VYNDAMAX [Suspect]
     Active Substance: TAFAMIDIS
     Dosage: 61 MG

REACTIONS (13)
  - Death [Fatal]
  - Cardiac failure congestive [Unknown]
  - Deafness neurosensory [Unknown]
  - Cardiomyopathy [Unknown]
  - Electrocardiogram abnormal [Unknown]
  - Atrial flutter [Unknown]
  - Coronary artery disease [Unknown]
  - Eustachian tube dysfunction [Unknown]
  - Essential hypertension [Unknown]
  - Excessive cerumen production [Unknown]
  - Nasal congestion [Unknown]
  - Pleural effusion [Unknown]
  - Dyspnoea [Unknown]
